FAERS Safety Report 7281942-9 (Version None)
Quarter: 2011Q1

REPORT INFORMATION
  Report Type: 
  Country: None (occurrence: None)
  Receive Date: 20110208
  Receipt Date: 20110204
  Transmission Date: 20110831
  Serious: Yes (Hospitalization)
  Sender: FDA-Public Use
  Company Number: US-AMGEN-USASP2011006927

PATIENT
  Age: 63 Year
  Sex: Female

DRUGS (1)
  1. ENBREL [Suspect]
     Indication: RHEUMATOID ARTHRITIS
     Dates: start: 20100217

REACTIONS (5)
  - POSTOPERATIVE ILEUS [None]
  - ATRIAL FIBRILLATION [None]
  - POST PROCEDURAL PULMONARY EMBOLISM [None]
  - AORTIC ANEURYSM [None]
  - ARTHRALGIA [None]
